FAERS Safety Report 4535979-0 (Version None)
Quarter: 2005Q1

REPORT INFORMATION
  Report Type: 
  Country: None (occurrence: None)
  Receive Date: 20041216
  Receipt Date: 20031103
  Transmission Date: 20050727
  Serious: Yes (Other)
  Sender: FDA-Public Use
  Company Number: HQWYE261725NOV03

PATIENT
  Age: 53 Year
  Sex: Female
  Weight: 68.1 kg

DRUGS (7)
  1. EFFEXOR XR [Suspect]
     Dosage: SEE IMAGE
     Route: 048
     Dates: start: 20031001, end: 20031001
  2. EFFEXOR XR [Suspect]
     Dosage: SEE IMAGE
     Route: 048
     Dates: end: 20031001
  3. EFFEXOR XR [Suspect]
     Dosage: SEE IMAGE
     Route: 048
     Dates: start: 20031001, end: 20031028
  4. NORVASC [Concomitant]
  5. CALCIUM (CALCIUM) [Concomitant]
  6. GLUCOSAMINE (GLUCOSAMINE) [Concomitant]
  7. WELLBUTRIN [Concomitant]

REACTIONS (4)
  - BLOOD CREATINE PHOSPHOKINASE INCREASED [None]
  - ECCHYMOSIS [None]
  - MYALGIA [None]
  - MYOSITIS [None]
